FAERS Safety Report 21612834 (Version 1)
Quarter: 2022Q4

REPORT INFORMATION
  Report Type: Spontaneous
  Country: BR (occurrence: BR)
  Receive Date: 20221118
  Receipt Date: 20221118
  Transmission Date: 20230113
  Serious: Yes (Hospitalization, Other)
  Sender: FDA-Public Use
  Company Number: BR-AMGEN-BRASP2022195812

PATIENT
  Sex: Female

DRUGS (1)
  1. BLINCYTO [Suspect]
     Active Substance: BLINATUMOMAB
     Indication: Product used for unknown indication
     Dosage: UNK
     Route: 040

REACTIONS (6)
  - Femur fracture [Recovering/Resolving]
  - Seizure [Recovering/Resolving]
  - Cardio-respiratory arrest [Recovering/Resolving]
  - Nervous system disorder [Recovering/Resolving]
  - Disease recurrence [Recovering/Resolving]
  - Confusional state [Not Recovered/Not Resolved]
